FAERS Safety Report 20547012 (Version 9)
Quarter: 2024Q4

REPORT INFORMATION
  Report Type: Spontaneous
  Country: US (occurrence: US)
  Receive Date: 20220303
  Receipt Date: 20241010
  Transmission Date: 20250115
  Serious: Yes (Hospitalization, Disabling, Other)
  Sender: ORGANON
  Company Number: US-ORGANON-O2203USA000160

PATIENT
  Sex: Female
  Weight: 73.18 kg

DRUGS (7)
  1. SINGULAIR [Suspect]
     Active Substance: MONTELUKAST SODIUM
     Dosage: UNK; (IN BETWEEN 2005 TO 2011 OR 2016)
     Route: 048
     Dates: start: 2005, end: 2016
  2. SINGULAIR [Suspect]
     Active Substance: MONTELUKAST SODIUM
     Dosage: UNK; (START DATE: BEFORE 2007)
     Route: 048
     Dates: end: 2010
  3. SINGULAIR [Suspect]
     Active Substance: MONTELUKAST SODIUM
     Dosage: 10 MILLIGRAM, AT BEDTIME
     Route: 048
     Dates: start: 2010, end: 2012
  4. SINGULAIR [Suspect]
     Active Substance: MONTELUKAST SODIUM
     Dosage: UNK; BEFORE 2010 AND AFTER
     Route: 048
  5. SINGULAIR [Suspect]
     Active Substance: MONTELUKAST SODIUM
     Dosage: UNK; (START DATE: BETWEEN 2015 THROUGH 2019)
     Route: 048
     Dates: start: 2015, end: 2019
  6. SINGULAIR [Suspect]
     Active Substance: MONTELUKAST SODIUM
     Dosage: UNK
     Route: 048
  7. BACLOFEN [Suspect]
     Active Substance: BACLOFEN
     Dosage: 5 MILLIGRAM, TID
     Route: 048

REACTIONS (26)
  - Non-cardiac chest pain [Unknown]
  - Neuropsychological symptoms [Not Recovered/Not Resolved]
  - Major depression [Not Recovered/Not Resolved]
  - Multiple sclerosis [Unknown]
  - Systemic lupus erythematosus [Unknown]
  - Migraine [Not Recovered/Not Resolved]
  - Generalised anxiety disorder [Not Recovered/Not Resolved]
  - Scleroderma [Unknown]
  - Sleep disorder [Not Recovered/Not Resolved]
  - Nightmare [Unknown]
  - Headache [Not Recovered/Not Resolved]
  - Tremor [Not Recovered/Not Resolved]
  - Insomnia [Recovered/Resolved]
  - Panic attack [Unknown]
  - Stress [Not Recovered/Not Resolved]
  - Crying [Unknown]
  - Asthenia [Recovered/Resolved]
  - Back pain [Unknown]
  - Neck pain [Unknown]
  - Troponin increased [Recovered/Resolved]
  - Left ventricular dilatation [Unknown]
  - Paraesthesia [Unknown]
  - Pre-eclampsia [Unknown]
  - Exposure during pregnancy [Recovered/Resolved]
  - Hypoaesthesia [Unknown]
  - Blood pressure abnormal [Unknown]

NARRATIVE: CASE EVENT DATE: 20100101
